FAERS Safety Report 24461969 (Version 1)
Quarter: 2024Q4

REPORT INFORMATION
  Report Type: Report from Study
  Country: RO (occurrence: RO)
  Receive Date: 20241018
  Receipt Date: 20241018
  Transmission Date: 20250114
  Serious: No
  Sender: ROCHE
  Company Number: RO-ROCHE-3567140

PATIENT
  Age: 74 Year
  Sex: Female

DRUGS (1)
  1. MABTHERA [Suspect]
     Active Substance: RITUXIMAB
     Indication: Product used for unknown indication
     Dosage: INJECTABLE
     Route: 058

REACTIONS (3)
  - Hypoacusis [Unknown]
  - Ill-defined disorder [Unknown]
  - Memory impairment [Unknown]
